FAERS Safety Report 5121341-9 (Version None)
Quarter: 2006Q4

REPORT INFORMATION
  Report Type: 
  Country: None (occurrence: None)
  Receive Date: 20061002
  Receipt Date: 20060927
  Transmission Date: 20070319
  Serious: Yes (Other)
  Sender: FDA-Public Use
  Company Number: A0615168A

PATIENT
  Sex: Male

DRUGS (1)
  1. PAXIL [Suspect]
     Indication: DRUG USE FOR UNKNOWN INDICATION
     Dosage: ORAL
     Route: 048

REACTIONS (6)
  - ABNORMAL BEHAVIOUR [None]
  - COGNITIVE DISORDER [None]
  - DRUG WITHDRAWAL SYNDROME [None]
  - MENTAL DISORDER [None]
  - PHYSICAL ASSAULT [None]
  - TREATMENT NONCOMPLIANCE [None]
